FAERS Safety Report 6992466-8 (Version None)
Quarter: 2010Q3

REPORT INFORMATION
  Report Type: 
  Country: None (occurrence: None)
  Receive Date: 20100917
  Receipt Date: 20100914
  Transmission Date: 20110219
  Serious: Yes (Death, Disabling, Other)
  Sender: FDA-Public Use
  Company Number: PHHY2010JP61150

PATIENT
  Age: 1 Year
  Sex: Male

DRUGS (1)
  1. CYCLOSPORINE [Suspect]

REACTIONS (3)
  - HYPERTENSION [None]
  - RENAL FAILURE ACUTE [None]
  - REVERSIBLE POSTERIOR LEUKOENCEPHALOPATHY SYNDROME [None]
